FAERS Safety Report 6616313-9 (Version None)
Quarter: 2010Q1

REPORT INFORMATION
  Report Type: 
  Country: None (occurrence: None)
  Receive Date: 20100305
  Receipt Date: 20100224
  Transmission Date: 20100710
  Serious: Yes (Death, Hospitalization)
  Sender: FDA-Public Use
  Company Number: US-ROCHE-687903

PATIENT
  Sex: Female

DRUGS (1)
  1. BEVACIZUMAB [Suspect]
     Route: 065

REACTIONS (3)
  - HAEMORRHAGE [None]
  - HEREDITARY HAEMORRHAGIC TELANGIECTASIA [None]
  - ILL-DEFINED DISORDER [None]
